FAERS Safety Report 9677560 (Version 1)
Quarter: 2013Q4

REPORT INFORMATION
  Report Type: Spontaneous
  Country: GB (occurrence: GB)
  Receive Date: 20131108
  Receipt Date: 20131108
  Transmission Date: 20140711
  Serious: Yes (Disabling, Other)
  Sender: FDA-Public Use
  Company Number: GB-009507513-1311GBR001456

PATIENT
  Age: 64 Year
  Sex: Male
  Weight: 86 kg

DRUGS (4)
  1. FINASTERIDE [Suspect]
     Indication: PRODUCT USED FOR UNKNOWN INDICATION
     Dosage: UNK
     Route: 065
     Dates: start: 20130130
  2. DICLOFENAC SODIUM [Interacting]
     Indication: BACK PAIN
     Dosage: 50 MG, TID
     Route: 065
     Dates: start: 20121220
  3. OMEPRAZOLE [Concomitant]
     Indication: PRODUCT USED FOR UNKNOWN INDICATION
     Dosage: UNK
     Route: 065
     Dates: start: 20121220
  4. PROCHLORPERAZINE [Concomitant]
     Indication: PRODUCT USED FOR UNKNOWN INDICATION
     Dosage: UNK
     Route: 065
     Dates: start: 20130108, end: 20130115

REACTIONS (2)
  - Back pain [Recovered/Resolved]
  - Drug interaction [Recovered/Resolved]
